FAERS Safety Report 6581822-8 (Version None)
Quarter: 2010Q1

REPORT INFORMATION
  Report Type: 
  Country: None (occurrence: None)
  Receive Date: 20100215
  Receipt Date: 20100210
  Transmission Date: 20100710
  Serious: Yes (Death)
  Sender: FDA-Public Use
  Company Number: AR-ASTRAZENECA-2009SE33313

PATIENT
  Age: 93 Year
  Sex: Female

DRUGS (2)
  1. DURACAINE [Suspect]
     Indication: HIP ARTHROPLASTY
     Route: 037
     Dates: start: 20091221, end: 20091221
  2. FENTANYL-100 [Suspect]
     Indication: HIP ARTHROPLASTY
     Dates: start: 20091221, end: 20091221

REACTIONS (3)
  - BRADYCARDIA [None]
  - CARDIAC ARREST [None]
  - DEATH [None]
